FAERS Safety Report 6330350-3 (Version None)
Quarter: 2009Q3

REPORT INFORMATION
  Report Type: 
  Country: None (occurrence: None)
  Receive Date: 20090826
  Receipt Date: 20090826
  Transmission Date: 20100115
  Serious: Yes (Death)
  Sender: FDA-Public Use
  Company Number: None

PATIENT
  Sex: Male
  Weight: 69.5 kg

DRUGS (4)
  1. DASATINIB 100 MG BRISTOL-MYERS SQUIBB [Suspect]
     Indication: METASTATIC NEOPLASM
     Dosage: 100 MG DAILY PO
     Route: 048
     Dates: start: 20071120, end: 20090624
  2. CITALOPRAM HYDROBROMIDE [Suspect]
  3. MORPHINE [Concomitant]
  4. MEGESTROL ACETATE [Concomitant]

REACTIONS (2)
  - ASPIRATION PLEURAL CAVITY [None]
  - DYSPNOEA [None]
